FAERS Safety Report 6647911-4 (Version None)
Quarter: 2010Q1

REPORT INFORMATION
  Report Type: 
  Country: None (occurrence: None)
  Receive Date: 20100318
  Receipt Date: 20100309
  Transmission Date: 20100710
  Serious: Yes (Other)
  Sender: FDA-Public Use
  Company Number: 2010PL000029

PATIENT
  Age: 34 Year
  Sex: Female

DRUGS (1)
  1. AZATHIOPRINE [Suspect]
     Indication: CROHN'S DISEASE
     Dosage: 175 MG; QD;

REACTIONS (8)
  - DYSPNOEA [None]
  - EPSTEIN-BARR VIRUS TEST POSITIVE [None]
  - LUNG NEOPLASM [None]
  - LYMPHOPENIA [None]
  - LYMPHOPROLIFERATIVE DISORDER [None]
  - PYREXIA [None]
  - RENAL MASS [None]
  - SWELLING FACE [None]
